FAERS Safety Report 14410492 (Version 5)
Quarter: 2018Q3

REPORT INFORMATION
  Report Type: Report from Study
  Country: US (occurrence: US)
  Receive Date: 20180119
  Receipt Date: 20180713
  Transmission Date: 20181010
  Serious: Yes (Hospitalization)
  Sender: FDA-Public Use
  Company Number: US-TAIHO ONCOLOGY INC-EU-2017-01538

PATIENT
  Age: 75 Year
  Sex: Female
  Weight: 73.09 kg

DRUGS (13)
  1. PRILOSEC [Concomitant]
     Active Substance: OMEPRAZOLE MAGNESIUM
     Dosage: EVERY MORNING
  2. LONSURF [Suspect]
     Active Substance: TIPIRACIL HYDROCHLORIDE\TRIFLURIDINE
     Indication: COLORECTAL CANCER METASTATIC
     Dosage: CYCLE 1
     Route: 048
     Dates: start: 20171120, end: 20171201
  3. TRICOR [Concomitant]
     Active Substance: FENOFIBRATE
  4. FISH OIL [Concomitant]
     Active Substance: FISH OIL
  5. POTASSIUM [Concomitant]
     Active Substance: POTASSIUM
  6. XARELTO [Concomitant]
     Active Substance: RIVAROXABAN
  7. LONSURF [Suspect]
     Active Substance: TIPIRACIL HYDROCHLORIDE\TRIFLURIDINE
     Indication: COLORECTAL CANCER METASTATIC
     Dosage: CYCLE 2
     Route: 048
     Dates: start: 20171218, end: 20171229
  8. FLECAINIDE [Concomitant]
     Active Substance: FLECAINIDE
     Indication: ATRIAL FIBRILLATION
  9. ADVAIR HFA [Concomitant]
     Active Substance: FLUTICASONE PROPIONATE\SALMETEROL XINAFOATE
     Indication: ASTHMA
     Dosage: 250/50; 1 PUFF TWICE DAILY
  10. ZOFRAN [Concomitant]
     Active Substance: ONDANSETRON HYDROCHLORIDE
  11. CALCIUM [Concomitant]
     Active Substance: CALCIUM
  12. LONSURF [Suspect]
     Active Substance: TIPIRACIL HYDROCHLORIDE\TRIFLURIDINE
     Indication: COLORECTAL CANCER METASTATIC
     Dosage: CURRENT CYCLE 7 OR 8 STARTED ON 25 JUNE 2018
     Route: 048
     Dates: start: 20180205, end: 20180216
  13. METOPROLOL. [Concomitant]
     Active Substance: METOPROLOL
     Indication: BLOOD PRESSURE ABNORMAL

REACTIONS (10)
  - Weight decreased [Unknown]
  - Dehydration [Recovered/Resolved]
  - Memory impairment [Unknown]
  - Blood potassium decreased [Unknown]
  - Faeces discoloured [Recovered/Resolved]
  - Haematochezia [Unknown]
  - Vomiting [Not Recovered/Not Resolved]
  - Diarrhoea [Recovered/Resolved]
  - Pancytopenia [Not Recovered/Not Resolved]
  - Fatigue [Unknown]

NARRATIVE: CASE EVENT DATE: 2017
